FAERS Safety Report 4747784-0 (Version None)
Quarter: 2005Q3

REPORT INFORMATION
  Report Type: 
  Country: None (occurrence: None)
  Receive Date: 20050816
  Receipt Date: 20050805
  Transmission Date: 20060218
  Serious: Yes (Other)
  Sender: FDA-Public Use
  Company Number: 2005112907

PATIENT
  Sex: Male

DRUGS (4)
  1. LIPITOR [Suspect]
     Indication: ILL-DEFINED DISORDER
     Dosage: ORAL
     Route: 048
  2. NOVO-METROL (METOPROLOL TARTRATE) [Concomitant]
  3. RABEPRAZOLE SODIUM [Concomitant]
  4. COVERSYL (PERINDOPRIL) [Concomitant]

REACTIONS (3)
  - MYALGIA [None]
  - MYELODYSPLASTIC SYNDROME [None]
  - WEIGHT DECREASED [None]
